FAERS Safety Report 20905662 (Version 1)
Quarter: 2022Q2

REPORT INFORMATION
  Report Type: Spontaneous
  Country: US (occurrence: None)
  Receive Date: 20220602
  Receipt Date: 20220602
  Transmission Date: 20220721
  Serious: No
  Sender: FDA-Public Use
  Company Number: None

PATIENT
  Sex: Female
  Weight: 45.2 kg

DRUGS (2)
  1. CARBOPLATIN [Suspect]
     Active Substance: CARBOPLATIN
     Dates: end: 20190913
  2. TAXOL [Suspect]
     Active Substance: PACLITAXEL
     Dates: end: 20190913

REACTIONS (1)
  - Anaemia [None]

NARRATIVE: CASE EVENT DATE: 20191023
